FAERS Safety Report 13039161 (Version 1)
Quarter: 2016Q4

REPORT INFORMATION
  Report Type: Spontaneous
  Country: US (occurrence: US)
  Receive Date: 20161216
  Receipt Date: 20161216
  Transmission Date: 20170207
  Serious: No
  Sender: FDA-Public Use
  Company Number: None

PATIENT
  Age: 28 Year
  Sex: Female
  Weight: 63.45 kg

DRUGS (1)
  1. HALDOL [Suspect]
     Active Substance: HALOPERIDOL
     Route: 048
     Dates: start: 20161108, end: 20161110

REACTIONS (4)
  - Neck deformity [None]
  - Hyperhidrosis [None]
  - Drooling [None]
  - Muscle spasms [None]

NARRATIVE: CASE EVENT DATE: 20161110
